FAERS Safety Report 6617843-6 (Version None)
Quarter: 2010Q1

REPORT INFORMATION
  Report Type: 
  Country: None (occurrence: None)
  Receive Date: 20100308
  Receipt Date: 20100304
  Transmission Date: 20100710
  Serious: Yes (Life-Threatening, Other)
  Sender: FDA-Public Use
  Company Number: PHHY2010TW12538

PATIENT
  Sex: Female

DRUGS (1)
  1. ACLASTA [Suspect]
     Dosage: 5 MG/ 100 CC ONCE PER YEAR
     Route: 042
     Dates: start: 20100303

REACTIONS (3)
  - CARDIAC DISORDER [None]
  - COMA [None]
  - PYREXIA [None]
